FAERS Safety Report 15645120 (Version 1)
Quarter: 2018Q4

REPORT INFORMATION
  Report Type: Spontaneous
  Country: CH (occurrence: CH)
  Receive Date: 20181121
  Receipt Date: 20181121
  Transmission Date: 20190205
  Serious: Yes (Other)
  Sender: FDA-Public Use
  Company Number: CH-ASTRAZENECA-2018SF49583

PATIENT
  Age: 193 Month
  Sex: Male

DRUGS (5)
  1. NEXIUM [Suspect]
     Active Substance: ESOMEPRAZOLE MAGNESIUM
     Dosage: 20.0MG UNKNOWN
     Route: 048
  2. VENTOLIN [Suspect]
     Active Substance: ALBUTEROL SULFATE
     Dosage: 500.0MG UNKNOWN
     Route: 055
     Dates: start: 2016
  3. SODIUM BICARBONATE. [Concomitant]
     Active Substance: SODIUM BICARBONATE
     Route: 062
  4. NACL [Concomitant]
     Active Substance: SODIUM CHLORIDE
     Dates: start: 20181101
  5. FLUIMUCIL [Suspect]
     Active Substance: ACETYLCYSTEINE
     Dosage: 1.5ML UNKNOWN
     Route: 055
     Dates: start: 2016, end: 20181031

REACTIONS (2)
  - Headache [Recovered/Resolved]
  - Palpitations [Recovered/Resolved]

NARRATIVE: CASE EVENT DATE: 201809
